FAERS Safety Report 8975699 (Version 1)
Quarter: 2012Q4

REPORT INFORMATION
  Report Type: 
  Country: EC (occurrence: EC)
  Receive Date: 20121219
  Receipt Date: 20121219
  Transmission Date: 20130627
  Serious: Yes (Hospitalization)
  Sender: FDA-Public Use
  Company Number: PHHY2012EC117241

PATIENT

DRUGS (2)
  1. DIOVAN HCT [Suspect]
     Indication: HYPERTENSION
     Dosage: 1 DF (160/12.5 mg), QD
     Route: 048
     Dates: start: 20070824
  2. UVAMIN [Concomitant]
     Indication: URINARY TRACT DISORDER

REACTIONS (2)
  - Bladder prolapse [Unknown]
  - Pain [Unknown]
